FAERS Safety Report 12759984 (Version 3)
Quarter: 2016Q4

REPORT INFORMATION
  Report Type: Spontaneous
  Country: US (occurrence: US)
  Receive Date: 20160919
  Receipt Date: 20161107
  Transmission Date: 20170207
  Serious: No
  Sender: FDA-Public Use
  Company Number: US-PFIZER INC-2016436195

PATIENT
  Age: 81 Year
  Sex: Male

DRUGS (1)
  1. CAVERJECT [Suspect]
     Active Substance: ALPROSTADIL
     Indication: ERECTILE DYSFUNCTION
     Dosage: 20 UG, UNK
     Route: 017

REACTIONS (3)
  - Product quality issue [Unknown]
  - Incorrect dose administered [Unknown]
  - Drug ineffective [Unknown]
